FAERS Safety Report 15628590 (Version 2)
Quarter: 2019Q3

REPORT INFORMATION
  Report Type: Spontaneous
  Country: JP (occurrence: JP)
  Receive Date: 20181116
  Receipt Date: 20190712
  Transmission Date: 20191004
  Serious: Yes (Other)
  Sender: FDA-Public Use
  Company Number: JP-009507513-1811JPN001077J

PATIENT

DRUGS (1)
  1. KEYTRUDA [Suspect]
     Active Substance: PEMBROLIZUMAB
     Indication: NON-SMALL CELL LUNG CANCER
     Dosage: 200 MILLIGRAM, Q3W
     Route: 041

REACTIONS (8)
  - Hepatic failure [Unknown]
  - Renal failure [Unknown]
  - Pneumonitis [Unknown]
  - Rash [Unknown]
  - Pyrexia [Unknown]
  - Colitis [Unknown]
  - Stomatitis [Unknown]
  - Pruritus [Unknown]
